FAERS Safety Report 7754215-5 (Version None)
Quarter: 2011Q3

REPORT INFORMATION
  Report Type: 
  Country: None (occurrence: None)
  Receive Date: 20110915
  Receipt Date: 20110906
  Transmission Date: 20111222
  Serious: Yes (Other)
  Sender: FDA-Public Use
  Company Number: US-ASTRAZENECA-2011SE50442

PATIENT
  Age: 67 Year
  Sex: Female

DRUGS (3)
  1. CRESTOR [Suspect]
     Route: 048
     Dates: start: 20010101
  2. EFFEXOR [Suspect]
  3. ANTI DEPRESSANTS [Suspect]
     Route: 065

REACTIONS (6)
  - POST-TRAUMATIC STRESS DISORDER [None]
  - DRY MOUTH [None]
  - DEPRESSED MOOD [None]
  - SUICIDAL IDEATION [None]
  - TOOTH LOSS [None]
  - AFFECT LABILITY [None]
